FAERS Safety Report 10259799 (Version 2)
Quarter: 2014Q2

REPORT INFORMATION
  Report Type: Spontaneous
  Country: US (occurrence: US)
  Receive Date: 20140625
  Receipt Date: 20140625
  Transmission Date: 20141212
  Serious: Yes (Hospitalization)
  Sender: FDA-Public Use
  Company Number: US-GLAXOSMITHKLINE-A0911677A

PATIENT
  Sex: Male

DRUGS (5)
  1. AVANDIA [Suspect]
     Indication: DIABETES MELLITUS
     Route: 048
     Dates: start: 200401, end: 200902
  2. AVANDAMET [Suspect]
     Indication: DIABETES MELLITUS
     Route: 048
     Dates: start: 200208, end: 20090401
  3. TOPROL XL [Concomitant]
  4. ADVICOR [Concomitant]
  5. NORVASC [Concomitant]
     Dates: end: 20090401

REACTIONS (6)
  - Atrial fibrillation [Not Recovered/Not Resolved]
  - Supraventricular tachycardia [Unknown]
  - Atrial flutter [Unknown]
  - Chest pain [Unknown]
  - Coronary artery disease [Unknown]
  - Stent placement [Unknown]
